FAERS Safety Report 7690608-2 (Version None)
Quarter: 2011Q3

REPORT INFORMATION
  Report Type: 
  Country: None (occurrence: None)
  Receive Date: 20110817
  Receipt Date: 20110817
  Transmission Date: 20111222
  Serious: No
  Sender: FDA-Public Use
  Company Number: None

PATIENT
  Age: 89 Year
  Sex: Male
  Weight: 69 kg

DRUGS (1)
  1. INDOMETHACIN [Suspect]
     Indication: PAIN
     Dosage: 50 MG TID PO
     Route: 048
     Dates: start: 20110505, end: 20110506

REACTIONS (1)
  - RENAL IMPAIRMENT [None]
